FAERS Safety Report 24839688 (Version 1)
Quarter: 2025Q1

REPORT INFORMATION
  Report Type: Report from Study
  Country: US (occurrence: US)
  Receive Date: 20250114
  Receipt Date: 20250114
  Transmission Date: 20250408
  Serious: Yes (Death, Other)
  Sender: GILEAD
  Company Number: US-GILEAD-2025-0699667

PATIENT
  Sex: Male

DRUGS (10)
  1. AZTREONAM LYSINE [Suspect]
     Active Substance: AZTREONAM LYSINE
     Indication: Bronchiectasis
     Dosage: 75 MG, TID (75MG INHALED VIA NEBULIZER THREE TIMES DAILY FOR 28 DAYS)
     Route: 055
     Dates: start: 20240522, end: 202501
  2. CLOPIDOGREL [Concomitant]
     Active Substance: CLOPIDOGREL BISULFATE
  3. PREDNISONE [Concomitant]
     Active Substance: PREDNISONE
  4. ALBUTEROL SULFATE [Concomitant]
     Active Substance: ALBUTEROL SULFATE
  5. ACETYLCYSTEINE [Concomitant]
     Active Substance: ACETYLCYSTEINE
  6. ATORVASTATIN [Concomitant]
     Active Substance: ATORVASTATIN
  7. BUDESONIDE [Concomitant]
     Active Substance: BUDESONIDE
  8. TAMSULOSIN [Concomitant]
     Active Substance: TAMSULOSIN
  9. YUPELRI [Concomitant]
     Active Substance: REVEFENACIN
  10. ZOSYN [Concomitant]
     Active Substance: PIPERACILLIN SODIUM\TAZOBACTAM SODIUM

REACTIONS (2)
  - Death [Fatal]
  - Product use in unapproved indication [Unknown]
